FAERS Safety Report 11267877 (Version 3)
Quarter: 2015Q3

REPORT INFORMATION
  Report Type: Spontaneous
  Country: FR (occurrence: FR)
  Receive Date: 20150713
  Receipt Date: 20150729
  Transmission Date: 20151125
  Serious: Yes (Hospitalization)
  Sender: FDA-Public Use
  Company Number: FR-MERCK-1507FRA004896

PATIENT
  Age: 28 Year
  Sex: Female

DRUGS (2)
  1. AERIUS [Suspect]
     Active Substance: DESLORATADINE
     Indication: POISONING
     Dosage: 4 DF, ONCE
     Route: 048
     Dates: start: 20150701, end: 20150701
  2. DAFALGAN [Suspect]
     Active Substance: ACETAMINOPHEN
     Indication: POISONING
     Dosage: 8 DF, ONCE
     Route: 048
     Dates: start: 20150701, end: 20150701

REACTIONS (2)
  - Nausea [Recovered/Resolved]
  - Abdominal pain upper [Recovered/Resolved]

NARRATIVE: CASE EVENT DATE: 20150701
